FAERS Safety Report 20408740 (Version 1)
Quarter: 2022Q1

REPORT INFORMATION
  Report Type: Spontaneous
  Country: US (occurrence: None)
  Receive Date: 20220201
  Receipt Date: 20220201
  Transmission Date: 20220423
  Serious: Yes (Death)
  Sender: FDA-Public Use
  Company Number: 2022A051169

PATIENT
  Age: 21219 Day
  Sex: Female
  Weight: 60.5 kg

DRUGS (1)
  1. EVUSHELD [Suspect]
     Active Substance: CILGAVIMAB\TIXAGEVIMAB
     Indication: Prophylaxis
     Dosage: ONCE/SINGLE ADMINISTRATION
     Route: 030
     Dates: start: 20220128

REACTIONS (2)
  - Headache [Fatal]
  - Dysgeusia [Unknown]

NARRATIVE: CASE EVENT DATE: 20220128
